FAERS Safety Report 8648031 (Version 4)
Quarter: 2013Q1

REPORT INFORMATION
  Report Type: Spontaneous
  Country: US (occurrence: US)
  Receive Date: 20120703
  Receipt Date: 20130119
  Transmission Date: 20140127
  Serious: No
  Sender: FDA-Public Use
  Company Number: US-ALLERGAN-1208794US

PATIENT
  Sex: Male

DRUGS (3)
  1. BOTOX? [Suspect]
     Indication: SKIN WRINKLING
     Dosage: 60 UNITS, SINGLE
     Route: 030
     Dates: start: 20120609, end: 20120609
  2. BOTOX? [Suspect]
     Indication: SKIN WRINKLING
     Dosage: 40 UNITS, SINGLE
     Route: 030
     Dates: start: 20120616, end: 20120616
  3. BOTOX? [Suspect]
     Indication: SKIN WRINKLING

REACTIONS (4)
  - Vertigo [Recovering/Resolving]
  - Headache [Not Recovered/Not Resolved]
  - Tinnitus [Not Recovered/Not Resolved]
  - Drug ineffective [Unknown]
